FAERS Safety Report 5389372-1 (Version None)
Quarter: 2007Q3

REPORT INFORMATION
  Report Type: 
  Country: None (occurrence: None)
  Receive Date: 20070717
  Receipt Date: 20070709
  Transmission Date: 20080115
  Serious: Yes (Hospitalization)
  Sender: FDA-Public Use
  Company Number: AU-ROCHE-496374

PATIENT
  Age: 75 Year
  Sex: Male
  Weight: 100 kg

DRUGS (8)
  1. CAPECITABINE [Suspect]
     Dosage: GIVEN FROM DAYS ONE TO FOURTEEN OF EACH THREE-WEEK-CYCLE.
     Route: 048
     Dates: start: 20060412
  2. BEVACIZUMAB [Suspect]
     Route: 042
     Dates: start: 20060412
  3. MITOMYCIN-C BULK POWDER [Suspect]
     Dosage: MAXIMUM DOSE IS 14 MG FOR A MAXIMUM OF FOUR TREATMENTS.
     Route: 042
     Dates: start: 20060412
  4. SOLPRIN [Concomitant]
     Route: 048
     Dates: start: 20050601, end: 20060517
  5. PERINDOPRIL ERBUMINE [Concomitant]
     Route: 048
     Dates: start: 20050601
  6. SOTALOL HCL [Concomitant]
     Route: 048
     Dates: start: 20050601
  7. ZYLOPRIM [Concomitant]
     Route: 048
     Dates: start: 19860101
  8. ASPIRIN [Concomitant]
     Indication: PROPHYLAXIS
     Route: 048
     Dates: start: 20070504

REACTIONS (2)
  - HYPERTENSION [None]
  - TRANSIENT ISCHAEMIC ATTACK [None]
